FAERS Safety Report 17988612 (Version 1)
Quarter: 2020Q3

REPORT INFORMATION
  Report Type: Spontaneous
  Country: US (occurrence: US)
  Receive Date: 20200707
  Receipt Date: 20200707
  Transmission Date: 20201103
  Serious: No
  Sender: FDA-Public Use
  Company Number: US-PFIZER INC-2020257767

PATIENT
  Age: 87 Year
  Sex: Male

DRUGS (2)
  1. PREDNISONE. [Concomitant]
     Active Substance: PREDNISONE
     Dosage: 5 MG, DAILY
  2. XELJANZ [Suspect]
     Active Substance: TOFACITINIB CITRATE
     Indication: RHEUMATOID ARTHRITIS
     Dosage: 5 MG (ONE TABLET ON ODD DAYS AND THEN ONE TABLET TWO TIMES DAILY ON EVEN DAYS PER PRESCRIPTION)
     Route: 048
     Dates: start: 2018

REACTIONS (3)
  - Pain in extremity [Unknown]
  - Arthritis [Unknown]
  - Decubitus ulcer [Recovering/Resolving]
